FAERS Safety Report 16986186 (Version 2)
Quarter: 2019Q4

REPORT INFORMATION
  Report Type: Spontaneous
  Country: GR (occurrence: GR)
  Receive Date: 20191103
  Receipt Date: 20191209
  Transmission Date: 20200122
  Serious: Yes (Hospitalization, Other)
  Sender: FDA-Public Use
  Company Number: GR-BAXTER-2019BAX021996

PATIENT
  Age: 48 Year
  Sex: Female

DRUGS (4)
  1. HOLOXAN 2000 MG - POWDER FOR SOLUTION FOR INFUSION [Suspect]
     Active Substance: IFOSFAMIDE
     Indication: SARCOMA METASTATIC
     Dosage: ON D1-D3
     Route: 042
  2. DOXIL [Suspect]
     Active Substance: DOXORUBICIN HYDROCHLORIDE
     Indication: SARCOMA METASTATIC
     Dosage: ON D1
     Route: 042
  3. UROMITEXAN 400 MG /4ML [Suspect]
     Active Substance: MESNA
     Indication: SARCOMA METASTATIC
     Dosage: ON D1- D4
     Route: 042
  4. FILGRASTIM [Suspect]
     Active Substance: FILGRASTIM
     Indication: SARCOMA METASTATIC
     Dosage: D5-D12
     Route: 058

REACTIONS (7)
  - Chronic kidney disease [Unknown]
  - Anaemia [Unknown]
  - Febrile neutropenia [Unknown]
  - Thrombocytopenia [Unknown]
  - Therapy partial responder [Unknown]
  - Toxic encephalopathy [Recovered/Resolved]
  - Pyelonephritis [Unknown]
